FAERS Safety Report 5082434-8 (Version None)
Quarter: 2006Q3

REPORT INFORMATION
  Report Type: 
  Country: None (occurrence: None)
  Receive Date: 20060817
  Receipt Date: 20060808
  Transmission Date: 20061208
  Serious: Yes (Other)
  Sender: FDA-Public Use
  Company Number: DE-GLAXOSMITHKLINE-D0050560A

PATIENT
  Age: 54 Year
  Sex: Female

DRUGS (3)
  1. ELMENDOS [Suspect]
     Indication: SCHIZOAFFECTIVE DISORDER
     Route: 048
     Dates: start: 20060301
  2. LEPONEX [Suspect]
     Indication: SCHIZOAFFECTIVE DISORDER
     Dosage: 550MG PER DAY
     Route: 048
     Dates: start: 20060301
  3. QUILONUM RETARD [Concomitant]
     Indication: SCHIZOAFFECTIVE DISORDER
     Dosage: 450MG TWICE PER DAY
     Route: 048

REACTIONS (1)
  - INCONTINENCE [None]
